FAERS Safety Report 6955823-1 (Version None)
Quarter: 2010Q3

REPORT INFORMATION
  Report Type: 
  Country: None (occurrence: None)
  Receive Date: 20100826
  Receipt Date: 20100826
  Transmission Date: 20110219
  Serious: Yes (Death)
  Sender: FDA-Public Use
  Company Number: None

PATIENT
  Sex: Male

DRUGS (2)
  1. CITALOPRAM HYDROBROMIDE [Suspect]
     Dosage: 1 DOSE
     Dates: start: 20100809, end: 20100809
  2. CIPRO [Suspect]

REACTIONS (4)
  - BLOOD PRESSURE INCREASED [None]
  - COMPLETED SUICIDE [None]
  - GUN SHOT WOUND [None]
  - SUICIDAL IDEATION [None]
